FAERS Safety Report 13570726 (Version 1)
Quarter: 2017Q2

REPORT INFORMATION
  Report Type: Spontaneous
  Country: US (occurrence: US)
  Receive Date: 20170523
  Receipt Date: 20170523
  Transmission Date: 20170830
  Serious: No
  Sender: FDA-Public Use
  Company Number: US-BAUSCH-BL-2016-010585

PATIENT
  Age: 45 Year
  Sex: Female
  Weight: 115.32 kg

DRUGS (2)
  1. MESTINON [Suspect]
     Active Substance: PYRIDOSTIGMINE BROMIDE
     Indication: MYASTHENIA GRAVIS
     Route: 048
     Dates: start: 20160425
  2. ALDOMET [Concomitant]
     Active Substance: METHYLDOPA
     Indication: HYPERTENSION
     Route: 048

REACTIONS (1)
  - Blepharospasm [Recovered/Resolved]

NARRATIVE: CASE EVENT DATE: 20160501
